FAERS Safety Report 13453196 (Version 1)
Quarter: 2017Q2

REPORT INFORMATION
  Report Type: Spontaneous
  Country: FR (occurrence: FR)
  Receive Date: 20170418
  Receipt Date: 20170418
  Transmission Date: 20170830
  Serious: Yes (Death, Hospitalization, Other)
  Sender: FDA-Public Use
  Company Number: FR-CELGENEUS-FRA-20170401561

PATIENT
  Age: 65 Year
  Sex: Male

DRUGS (6)
  1. CICLOSPORIN [Concomitant]
     Active Substance: CYCLOSPORINE
     Dosage: 4200  MG
     Route: 065
  2. CICLOSPORIN [Concomitant]
     Active Substance: CYCLOSPORINE
     Indication: IMMUNOSUPPRESSANT DRUG THERAPY
     Dosage: 300 MG
     Route: 065
     Dates: start: 20140915
  3. FLUCONAZOLE. [Concomitant]
     Active Substance: FLUCONAZOLE
     Indication: APLASIA
     Route: 065
  4. MYCOPHENOLATE MOFETIL. [Concomitant]
     Active Substance: MYCOPHENOLATE MOFETIL
     Indication: IMMUNOSUPPRESSANT DRUG THERAPY
     Dosage: 2 G
     Route: 065
     Dates: start: 20140915
  5. ACICLOVIR [Concomitant]
     Active Substance: ACYCLOVIR
     Indication: APLASIA
     Route: 065
  6. AZACITIDINE INJECTABLE [Suspect]
     Active Substance: AZACITIDINE
     Indication: CHRONIC MYELOMONOCYTIC LEUKAEMIA
     Route: 065

REACTIONS (11)
  - Acute kidney injury [Unknown]
  - Graft versus host disease [Unknown]
  - Hyperkalaemia [Unknown]
  - Metabolic acidosis [Unknown]
  - Meningeal disorder [Unknown]
  - Multiple organ dysfunction syndrome [Fatal]
  - Meningoencephalitis herpetic [Unknown]
  - Confusional state [Unknown]
  - Escherichia infection [Unknown]
  - Cerebral toxoplasmosis [Unknown]
  - Diarrhoea [Unknown]
